FAERS Safety Report 8574527-5 (Version None)
Quarter: 2012Q3

REPORT INFORMATION
  Report Type: 
  Country: None (occurrence: None)
  Receive Date: 20120806
  Receipt Date: 20120730
  Transmission Date: 20120928
  Serious: Yes (Hospitalization, Other)
  Sender: FDA-Public Use
  Company Number: VN-BAXTER-2012BAX013233

PATIENT
  Age: 55 Year
  Sex: Male

DRUGS (3)
  1. DIANEAL [Suspect]
     Dates: start: 20091215
  2. DIANEAL [Suspect]
     Route: 033
     Dates: start: 20091215
  3. DIANEAL [Suspect]
     Route: 033
     Dates: start: 20091215

REACTIONS (2)
  - PERITONITIS [None]
  - INFLUENZA [None]
